FAERS Safety Report 6314440-7 (Version None)
Quarter: 2009Q3

REPORT INFORMATION
  Report Type: 
  Country: None (occurrence: None)
  Receive Date: 20090819
  Receipt Date: 20090810
  Transmission Date: 20100115
  Serious: Yes (Hospitalization)
  Sender: FDA-Public Use
  Company Number: FR-ASTRAZENECA-2009SE07339

PATIENT
  Age: 25299 Day
  Sex: Male
  Weight: 79 kg

DRUGS (3)
  1. NEXIUM [Suspect]
     Indication: ABDOMINAL PAIN UPPER
     Route: 048
     Dates: start: 20090601, end: 20090722
  2. OLMETEC [Concomitant]
     Indication: HYPERTENSION
  3. ASPEGIC 1000 [Concomitant]
     Dosage: 3-4 GRAMS DAILY
     Dates: start: 20090715

REACTIONS (2)
  - AGRANULOCYTOSIS [None]
  - THROMBOCYTOPENIC PURPURA [None]
